FAERS Safety Report 5046832-0 (Version None)
Quarter: 2006Q3

REPORT INFORMATION
  Report Type: 
  Country: None (occurrence: None)
  Receive Date: 20060705
  Receipt Date: 20060705
  Transmission Date: 20061208
  Serious: No
  Sender: FDA-Public Use
  Company Number: None

PATIENT
  Age: 83 Year
  Sex: Male

DRUGS (1)
  1. HEPARIN [Suspect]
     Dosage: TITRATED
     Dates: start: 20060411, end: 20060416

REACTIONS (2)
  - GLOMERULONEPHRITIS [None]
  - THROMBOCYTOPENIA [None]
